FAERS Safety Report 15354702 (Version 2)
Quarter: 2018Q4

REPORT INFORMATION
  Report Type: Report from Study
  Country: US (occurrence: US)
  Receive Date: 20180906
  Receipt Date: 20181108
  Transmission Date: 20190204
  Serious: Yes (Disabling)
  Sender: FDA-Public Use
  Company Number: US-ROCHE-2178810

PATIENT
  Sex: Female

DRUGS (3)
  1. AMPYRA [Suspect]
     Active Substance: DALFAMPRIDINE
     Indication: MULTIPLE SCLEROSIS
  2. AMPYRA [Suspect]
     Active Substance: DALFAMPRIDINE
     Indication: GAIT DISTURBANCE
     Route: 048
     Dates: end: 201804
  3. OCREVUS [Suspect]
     Active Substance: OCRELIZUMAB
     Indication: RELAPSING-REMITTING MULTIPLE SCLEROSIS
     Route: 042
     Dates: start: 20180615

REACTIONS (9)
  - Therapeutic response unexpected [Unknown]
  - Urticaria [Unknown]
  - Migraine [Unknown]
  - Device occlusion [Unknown]
  - Melanocytic naevus [Unknown]
  - Bladder disorder [Unknown]
  - Ill-defined disorder [Unknown]
  - Gait inability [Not Recovered/Not Resolved]
  - Blood pressure increased [Unknown]
